FAERS Safety Report 9324569 (Version 5)
Quarter: 2015Q2

REPORT INFORMATION
  Report Type: Report from Study
  Country: US (occurrence: US)
  Receive Date: 20130603
  Receipt Date: 20150604
  Transmission Date: 20150821
  Serious: Yes (Death, Hospitalization, Other)
  Sender: FDA-Public Use
  Company Number: US-ALEXION-A201301210

PATIENT

DRUGS (5)
  1. CELLCEPT [Concomitant]
     Active Substance: MYCOPHENOLATE MOFETIL\MYCOPHENOLATE MOFETIL HYDROCHLORIDE
     Indication: IMMUNOSUPPRESSION
     Dosage: UNK
     Route: 065
  2. SOLIRIS [Suspect]
     Active Substance: ECULIZUMAB
     Indication: HAEMOLYTIC URAEMIC SYNDROME
     Dosage: UNK
     Route: 042
     Dates: start: 20120817
  3. PREDNISONE. [Concomitant]
     Active Substance: PREDNISONE
     Indication: IMMUNOSUPPRESSION
     Dosage: UNK
     Route: 065
  4. SOLIRIS [Suspect]
     Active Substance: ECULIZUMAB
     Dosage: 900 MG, Q2W
     Route: 042
  5. PROGRAF [Concomitant]
     Active Substance: TACROLIMUS\TACROLIMUS ANHYDROUS
     Indication: IMMUNOSUPPRESSION
     Dosage: UNK
     Route: 065

REACTIONS (15)
  - Bacteraemia [Unknown]
  - Wound infection fungal [Unknown]
  - Condition aggravated [Unknown]
  - Graft versus host disease [Unknown]
  - Respiratory failure [Fatal]
  - Lung disorder [Fatal]
  - Oxygen saturation decreased [Fatal]
  - Respiratory disorder [Fatal]
  - Anxiety [Unknown]
  - Abscess [Unknown]
  - Graft versus host disease in lung [Fatal]
  - Pain [Unknown]
  - Confusional state [Recovered/Resolved]
  - Skin wound [Unknown]
  - Hallucination [Unknown]

NARRATIVE: CASE EVENT DATE: 20130505
